FAERS Safety Report 4569447-7 (Version None)
Quarter: 2005Q1

REPORT INFORMATION
  Report Type: 
  Country: None (occurrence: None)
  Receive Date: 20050201
  Receipt Date: 20050119
  Transmission Date: 20050727
  Serious: Yes (Hospitalization)
  Sender: FDA-Public Use
  Company Number: 2005016309

PATIENT
  Age: 68 Year
  Sex: Male
  Weight: 106.5953 kg

DRUGS (6)
  1. BEXTRA [Suspect]
     Indication: ARTHRITIS
     Dosage: 40 MG (20 MG, 2 IN 1 D)
     Dates: start: 20030101, end: 20041201
  2. METOPROLOL TARTRATE [Suspect]
     Indication: ATRIOVENTRICULAR BLOCK
     Dates: start: 20040601, end: 20040101
  3. ROSUVASTATIN (ROSUVASTATIN) [Suspect]
     Indication: BLOOD CHOLESTEROL INCREASED
     Dates: start: 20040801, end: 20040801
  4. CLOPIDOFREL SULFATE (CLOPIDOGREL SULFATE0 [Concomitant]
  5. AMLODIPINE BESYLATE [Concomitant]
  6. RAMIPRIL [Concomitant]

REACTIONS (4)
  - CHEST PAIN [None]
  - CORONARY ARTERY OCCLUSION [None]
  - HYPERTENSION [None]
  - PAIN OF SKIN [None]
